FAERS Safety Report 16131274 (Version 1)
Quarter: 2019Q1

REPORT INFORMATION
  Report Type: Report from Study
  Country: US (occurrence: US)
  Receive Date: 20190328
  Receipt Date: 20190328
  Transmission Date: 20190418
  Serious: Yes (Hospitalization, Other)
  Sender: FDA-Public Use
  Company Number: US-GILEAD-2018-0344467

PATIENT
  Age: 69 Year
  Sex: Female
  Weight: 40 kg

DRUGS (38)
  1. AXICABTAGENE CILOLEUCEL [Suspect]
     Active Substance: AXICABTAGENE CILOLEUCEL
     Indication: NON-HODGKIN^S LYMPHOMA UNSPECIFIED HISTOLOGY INDOLENT
     Dosage: 68 ML
     Route: 042
     Dates: start: 20170829, end: 20170829
  2. AUGMENTIN [Concomitant]
     Active Substance: AMOXICILLIN\CLAVULANATE POTASSIUM
  3. ATOVAQUONE. [Concomitant]
     Active Substance: ATOVAQUONE
  4. BOVINE ANTI-ROTAVIRUS IMMUNOGLOBULIN [Concomitant]
  5. VALACICLOVIR HYDROCHLORIDE [Concomitant]
     Active Substance: VALACYCLOVIR HYDROCHLORIDE
  6. DOCUSATE SODIUM. [Concomitant]
     Active Substance: DOCUSATE SODIUM
  7. SENNA ALEXANDRINA [Concomitant]
     Active Substance: SENNA LEAF
  8. VALTREX [Concomitant]
     Active Substance: VALACYCLOVIR HYDROCHLORIDE
  9. POSACONAZOLE [Concomitant]
     Active Substance: POSACONAZOLE
  10. SANDOSTATIN [Concomitant]
     Active Substance: OCTREOTIDE ACETATE
  11. LIALDA [Concomitant]
     Active Substance: MESALAMINE
  12. ONDANSETRON [Concomitant]
     Active Substance: ONDANSETRON
  13. LOPERAMIDE HYDROCHLORIDE. [Concomitant]
     Active Substance: LOPERAMIDE HYDROCHLORIDE
  14. DOXEPIN HYDROCHLORIDE. [Concomitant]
     Active Substance: DOXEPIN HYDROCHLORIDE
  15. FLUDARABINE [Suspect]
     Active Substance: FLUDARABINE PHOSPHATE
     Indication: BONE MARROW CONDITIONING REGIMEN
     Dosage: 45 MG, QD
     Route: 042
     Dates: start: 20170824, end: 20170826
  16. CYCLOPHOSPHAMIDE. [Suspect]
     Active Substance: CYCLOPHOSPHAMIDE
     Indication: BONE MARROW CONDITIONING REGIMEN
     Dosage: 740 MG, QD
     Route: 042
     Dates: start: 20170824, end: 20170826
  17. MESNA. [Suspect]
     Active Substance: MESNA
     Indication: PROPHYLAXIS
     Dosage: 2220 MG, UNK
     Route: 042
     Dates: start: 20170824, end: 20170826
  18. BENZONATATE. [Concomitant]
     Active Substance: BENZONATATE
  19. MAGNESIUM OXIDE. [Concomitant]
     Active Substance: MAGNESIUM OXIDE
  20. COLECALCIFEROL [Concomitant]
     Active Substance: CHOLECALCIFEROL
  21. CYANOCOBALAMIN. [Concomitant]
     Active Substance: CYANOCOBALAMIN
  22. PROCHLORPERAZINE EDISYLATE. [Concomitant]
     Active Substance: PROCHLORPERAZINE EDISYLATE
  23. CHOLESTYRAMINE. [Concomitant]
     Active Substance: CHOLESTYRAMINE
  24. NITAZOXANIDE [Concomitant]
     Active Substance: NITAZOXANIDE
  25. POTASSIUM CHLORIDE. [Concomitant]
     Active Substance: POTASSIUM CHLORIDE
  26. MONTELUKAST SODIUM. [Concomitant]
     Active Substance: MONTELUKAST SODIUM
  27. IMMUNOGLOBULIN G HUMAN [Concomitant]
     Active Substance: HUMAN IMMUNOGLOBULIN G
     Route: 048
  28. IMODIUM [Concomitant]
     Active Substance: LOPERAMIDE HYDROCHLORIDE
  29. CALCIUM CARBONATE. [Concomitant]
     Active Substance: CALCIUM CARBONATE
  30. FAMOTIDINE. [Concomitant]
     Active Substance: FAMOTIDINE
  31. MELATONIN [Concomitant]
     Active Substance: MELATONIN
  32. HEPARIN [Concomitant]
     Active Substance: HEPARIN SODIUM
  33. LOMOTIL [Concomitant]
     Active Substance: ATROPINE SULFATE\DIPHENOXYLATE HYDROCHLORIDE
  34. CETIRIZINE HYDROCHLORIDE. [Concomitant]
     Active Substance: CETIRIZINE HYDROCHLORIDE
  35. LEVETIRACETAM. [Concomitant]
     Active Substance: LEVETIRACETAM
  36. OXYCODONE HYDROCHLORIDE. [Concomitant]
     Active Substance: OXYCODONE HYDROCHLORIDE
  37. ALLOPURINOL. [Concomitant]
     Active Substance: ALLOPURINOL
  38. SIMETHICONE (DIMETHICONE) [Concomitant]
     Active Substance: DIMETHICONE

REACTIONS (3)
  - Colitis [Recovering/Resolving]
  - Weight decreased [Recovered/Resolved]
  - Pulmonary oedema [Recovered/Resolved]

NARRATIVE: CASE EVENT DATE: 20170827
